FAERS Safety Report 9278413 (Version 1)
Quarter: 2013Q2

REPORT INFORMATION
  Report Type: Spontaneous
  Country: US (occurrence: US)
  Receive Date: 20130508
  Receipt Date: 20130508
  Transmission Date: 20140414
  Serious: Yes (Hospitalization, Other)
  Sender: FDA-Public Use
  Company Number: US-JNJFOC-20130414873

PATIENT
  Age: 26 Year
  Sex: Female

DRUGS (6)
  1. ORTHO TRI-CYCLEN LO [Suspect]
     Indication: OVARIAN CYST
     Route: 048
     Dates: start: 2003, end: 20130314
  2. RISPERDAL [Concomitant]
     Indication: DEPRESSION
     Route: 048
  3. SINGULAIR [Concomitant]
     Indication: MULTIPLE ALLERGIES
     Route: 048
  4. NEXIUM [Concomitant]
     Indication: GASTROOESOPHAGEAL REFLUX DISEASE
     Route: 048
  5. ZYRTEC [Concomitant]
     Indication: ASTHMA
     Route: 048
  6. TESSALON [Concomitant]
     Indication: ASTHMA
     Route: 048
     Dates: start: 2010

REACTIONS (12)
  - Depression [Not Recovered/Not Resolved]
  - Renal failure [Unknown]
  - Cerebrovascular accident [Recovering/Resolving]
  - Benign intracranial hypertension [Not Recovered/Not Resolved]
  - Hypertension [Not Recovered/Not Resolved]
  - Organ failure [Unknown]
  - Amnesia [Not Recovered/Not Resolved]
  - Cholecystectomy [Unknown]
  - Anxiety [Not Recovered/Not Resolved]
  - Oligomenorrhoea [Recovered/Resolved]
  - Off label use [Recovered/Resolved]
  - Inappropriate schedule of drug administration [Recovered/Resolved]
